FAERS Safety Report 7231370-7 (Version None)
Quarter: 2011Q1

REPORT INFORMATION
  Report Type: 
  Country: None (occurrence: None)
  Receive Date: 20110118
  Receipt Date: 20110111
  Transmission Date: 20110831
  Serious: Yes (Life-Threatening, Disabling, Other)
  Sender: FDA-Public Use
  Company Number: US-MERCK-1011USA00617

PATIENT
  Age: 59 Year
  Sex: Female
  Weight: 83 kg

DRUGS (10)
  1. PRINIVIL [Suspect]
     Indication: HYPERTENSION
     Route: 048
     Dates: start: 20040101, end: 20090101
  2. ALLOPURINOL [Concomitant]
     Route: 065
  3. RANITIDINE [Concomitant]
     Route: 065
  4. GABAPENTIN [Concomitant]
     Route: 065
  5. DARVOCET-N 100 [Suspect]
     Route: 065
  6. ZOLPIDEM TARTRATE [Concomitant]
     Route: 065
  7. LORAZEPAM [Concomitant]
     Route: 065
  8. PREMARIN [Concomitant]
     Route: 065
  9. CLONAZEPAM [Concomitant]
     Route: 065
  10. PHENAZOPYRIDINE HYDROCHLORIDE [Concomitant]
     Route: 065

REACTIONS (3)
  - DYSPNOEA [None]
  - HEART RATE DECREASED [None]
  - COUGH [None]
